FAERS Safety Report 8846544 (Version 1)
Quarter: 2012Q4

REPORT INFORMATION
  Report Type: 
  Country: US (occurrence: US)
  Receive Date: 20121017
  Receipt Date: 20121017
  Transmission Date: 20130627
  Serious: Yes (Other)
  Sender: FDA-Public Use
  Company Number: US-GLAXOSMITHKLINE-A0997673A

PATIENT
  Age: 41 Year
  Sex: Female
  Weight: 63.6 kg

DRUGS (5)
  1. WELLBUTRIN [Suspect]
     Indication: PANIC ATTACK
     Route: 065
     Dates: start: 2003, end: 2003
  2. CELEXA [Suspect]
     Indication: PANIC ATTACK
     Route: 065
  3. PROZAC [Suspect]
     Indication: PANIC ATTACK
     Route: 065
     Dates: start: 2006, end: 2006
  4. LEXAPRO [Suspect]
     Indication: PANIC ATTACK
     Route: 065
  5. NO CONCURRENT MEDICATIONS [Concomitant]

REACTIONS (3)
  - Abortion spontaneous [Unknown]
  - Drug ineffective [Unknown]
  - Exposure during pregnancy [Unknown]
